FAERS Safety Report 6476606-5 (Version None)
Quarter: 2009Q4

REPORT INFORMATION
  Report Type: 
  Country: None (occurrence: None)
  Receive Date: 20091207
  Receipt Date: 20091203
  Transmission Date: 20100525
  Serious: Yes (Death, Hospitalization)
  Sender: FDA-Public Use
  Company Number: JP-ASTRAZENECA-2009SE05097

PATIENT
  Age: 79 Year
  Sex: Male
  Weight: 35 kg

DRUGS (11)
  1. IRESSA [Suspect]
     Indication: LUNG NEOPLASM MALIGNANT
     Route: 048
     Dates: start: 20090626, end: 20090713
  2. PAXIL [Suspect]
     Dosage: 10 MG, DAILY, STARTED BEFORE MAY-2009.
     Route: 048
     Dates: end: 20090717
  3. LENDORMIN D [Concomitant]
     Dosage: DOSE UNKNOWN, STARTED BEFORE MAY-2009.
     Route: 048
     Dates: end: 20090717
  4. VESICARE [Concomitant]
     Dosage: 5 MG, DAILY, STARTED BEFORE MAY-2009.
     Route: 048
     Dates: end: 20090720
  5. MAGLAX [Concomitant]
     Dosage: 500 MG, TWO TIMES A DAY, STARTED BEFORE MAY-2009.
     Route: 048
     Dates: end: 20090720
  6. PURSENNID [Concomitant]
     Dosage: 12 MG, DAILY, STARTED BEFORE MAY-2009.
     Route: 048
     Dates: end: 20090720
  7. OXYCONTIN [Concomitant]
     Route: 048
     Dates: start: 20090501, end: 20090716
  8. PREDNISOLONE [Concomitant]
     Route: 048
     Dates: start: 20090501, end: 20090720
  9. GASTER D [Concomitant]
     Route: 048
     Dates: start: 20090626, end: 20090720
  10. OXINORM [Concomitant]
     Route: 048
     Dates: start: 20090626, end: 20090720
  11. TELEMINSOFT [Concomitant]
     Route: 054
     Dates: start: 20090630, end: 20090720

REACTIONS (4)
  - CYSTITIS HAEMORRHAGIC [None]
  - DISSEMINATED INTRAVASCULAR COAGULATION [None]
  - INTERSTITIAL LUNG DISEASE [None]
  - SEPSIS [None]
